FAERS Safety Report 6239177-4 (Version None)
Quarter: 2009Q2

REPORT INFORMATION
  Report Type: 
  Country: None (occurrence: None)
  Receive Date: 20090617
  Receipt Date: 20080331
  Transmission Date: 20091009
  Serious: No
  Sender: FDA-Public Use
  Company Number: 273574

PATIENT
  Sex: Male

DRUGS (2)
  1. LEVEMIR [Suspect]
     Indication: DIABETES MELLITUS
     Dosage: 15 U, QD, SUBCUTANEOUS
     Route: 058
     Dates: start: 20080328
  2. NOVOLOG [Suspect]
     Indication: DIABETES MELLITUS
     Dosage: SLIDING SCALE, SUBCUTANEOUS
     Route: 058
     Dates: start: 20080328

REACTIONS (1)
  - BLOOD GLUCOSE INCREASED [None]
